FAERS Safety Report 5942939-1 (Version None)
Quarter: 2008Q4

REPORT INFORMATION
  Report Type: 
  Country: None (occurrence: None)
  Receive Date: 20081103
  Receipt Date: 20081030
  Transmission Date: 20090506
  Serious: Yes (Other)
  Sender: FDA-Public Use
  Company Number: 08H-163-0315040-00

PATIENT
  Sex: Male
  Weight: 3.8 kg

DRUGS (1)
  1. VITAMIN K1 [Suspect]
     Indication: DRUG USE FOR UNKNOWN INDICATION
     Dosage: 1 MG, ONCE, INTRAMUSCULAR
     Route: 030
     Dates: start: 20081003, end: 20081003

REACTIONS (2)
  - CONVULSION NEONATAL [None]
  - HAEMORRHAGE INTRACRANIAL [None]
